FAERS Safety Report 5400712-7 (Version None)
Quarter: 2007Q3

REPORT INFORMATION
  Report Type: 
  Country: None (occurrence: None)
  Receive Date: 20070730
  Receipt Date: 20070718
  Transmission Date: 20080115
  Serious: Yes (Other)
  Sender: FDA-Public Use
  Company Number: US-PFIZER INC-2007060046

PATIENT
  Sex: Female

DRUGS (4)
  1. NORVASC [Suspect]
     Indication: HYPERTENSION
  2. AMLODIPINE [Suspect]
     Indication: HYPERTENSION
     Dosage: TEXT:10MG DAILY EVERY DAY TDD:10MG
     Dates: start: 20070710, end: 20070715
  3. MACROBID [Concomitant]
  4. TYLENOL (CAPLET) [Concomitant]

REACTIONS (2)
  - ANGIOEDEMA [None]
  - SURGERY [None]
